FAERS Safety Report 6604336-5 (Version None)
Quarter: 2010Q1

REPORT INFORMATION
  Report Type: 
  Country: None (occurrence: None)
  Receive Date: 20100226
  Receipt Date: 20090825
  Transmission Date: 20100710
  Serious: No
  Sender: FDA-Public Use
  Company Number: A0804069A

PATIENT
  Age: 41 Year
  Sex: Female

DRUGS (1)
  1. LAMICTAL CD [Suspect]
     Indication: MOOD SWINGS
     Dosage: 200MG AT NIGHT
     Route: 048
     Dates: end: 20090818

REACTIONS (2)
  - BLISTER [None]
  - RASH [None]
